FAERS Safety Report 18959027 (Version 1)
Quarter: 2021Q1

REPORT INFORMATION
  Report Type: Spontaneous
  Country: GR (occurrence: GR)
  Receive Date: 20210302
  Receipt Date: 20210302
  Transmission Date: 20210420
  Serious: Yes (Death)
  Sender: FDA-Public Use
  Company Number: GR-MDD US OPERATIONS-USW201812-001912

PATIENT
  Age: 72 Year
  Sex: Female

DRUGS (6)
  1. SYMMETREL [Concomitant]
     Active Substance: AMANTADINE HYDROCHLORIDE
     Indication: PARKINSON^S DISEASE
     Dosage: NOT PROVIDED
  2. SALOSPIR [Concomitant]
     Active Substance: ASPIRIN
     Dosage: NOT PROVIDED
  3. ANTIVOM [Concomitant]
     Indication: VERTIGO
     Dosage: NOT PROVIDED
  4. APOMORPHINE HYDROCHLORIDE [Suspect]
     Active Substance: APOMORPHINE HYDROCHLORIDE
     Indication: PARKINSON^S DISEASE
     Route: 058
     Dates: start: 20181123
  5. NITRONG [Concomitant]
     Active Substance: NITROGLYCERIN
     Indication: CORONARY ARTERY DISEASE
     Dosage: NOT PROVIDED
  6. MADOPAR [Concomitant]
     Active Substance: BENSERAZIDE HYDROCHLORIDE\LEVODOPA
     Dosage: NOT PROVIDED

REACTIONS (6)
  - Administration site haematoma [Recovering/Resolving]
  - Device breakage [Unknown]
  - Administration site nodule [Recovering/Resolving]
  - Drug dose omission by device [Unknown]
  - Death [Fatal]
  - Administration site wound [Unknown]

NARRATIVE: CASE EVENT DATE: 202011
